FAERS Safety Report 4422496-1 (Version None)
Quarter: 2004Q3

REPORT INFORMATION
  Report Type: 
  Country: None (occurrence: None)
  Receive Date: 20040713
  Receipt Date: 20031208
  Transmission Date: 20050211
  Serious: No
  Sender: FDA-Public Use
  Company Number: PHEH2003US11192

PATIENT
  Age: 35 Year
  Sex: Female

DRUGS (1)
  1. ELIDEL [Suspect]
     Indication: ECZEMA
     Dosage: BID, TOPICAL
     Route: 061
     Dates: start: 20031101

REACTIONS (4)
  - CONDITION AGGRAVATED [None]
  - EYE IRRITATION [None]
  - EYE REDNESS [None]
  - PAROSMIA [None]
